FAERS Safety Report 8769388 (Version 1)
Quarter: 2012Q4

REPORT INFORMATION
  Report Type: 
  Country: US (occurrence: US)
  Receive Date: 20120905
  Receipt Date: 20120905
  Transmission Date: 20130627
  Serious: No
  Sender: FDA-Public Use
  Company Number: US-TEVA-356907USA

PATIENT
  Age: 59 Year
  Sex: Male

DRUGS (3)
  1. NUVIGIL [Suspect]
  2. MUCINEX [Concomitant]
  3. THYROID HORMONES [Concomitant]

REACTIONS (2)
  - Heart rate increased [Unknown]
  - Dizziness [Unknown]
